FAERS Safety Report 24900591 (Version 1)
Quarter: 2025Q1

REPORT INFORMATION
  Report Type: Spontaneous
  Country: US (occurrence: US)
  Receive Date: 20250129
  Receipt Date: 20250129
  Transmission Date: 20250409
  Serious: No
  Sender: CSL BEHRING
  Company Number: US-BEH-2025192835

PATIENT
  Age: 63 Year
  Sex: Male

DRUGS (11)
  1. HIZENTRA [Suspect]
     Active Substance: HUMAN IMMUNOGLOBULIN G
     Dosage: 10 GM/50ML: INFUSE 20 GRAMS (100 ML) ON MONDAY THROUGH OF ONE, THEN OFF WEEKS 2 THROUGH 4. REPEAT CY
     Route: 058
     Dates: start: 20241002
  2. ALBUTEROL [Concomitant]
     Active Substance: ALBUTEROL
  3. AMLODIPINE\VALSARTAN [Concomitant]
     Active Substance: AMLODIPINE\VALSARTAN
  4. CELECOXIB [Concomitant]
     Active Substance: CELECOXIB
  5. DOXYCYCLINE [Concomitant]
     Active Substance: DOXYCYCLINE
  6. LATANOPROST [Concomitant]
     Active Substance: LATANOPROST
  7. PAROXETINE [Concomitant]
     Active Substance: PAROXETINE
  8. PREDNISOLONE [Concomitant]
     Active Substance: PREDNISOLONE
  9. PYRIDOSTIGMINE [Concomitant]
     Active Substance: PYRIDOSTIGMINE
  10. ROSUVASTATIN [Concomitant]
     Active Substance: ROSUVASTATIN
  11. PYRIDOSTIGMINE [Concomitant]
     Active Substance: PYRIDOSTIGMINE

REACTIONS (1)
  - Ill-defined disorder [Unknown]

NARRATIVE: CASE EVENT DATE: 20241201
